FAERS Safety Report 18456029 (Version 1)
Quarter: 2020Q4

REPORT INFORMATION
  Report Type: Spontaneous
  Country: US (occurrence: US)
  Receive Date: 20201103
  Receipt Date: 20201103
  Transmission Date: 20210114
  Serious: Yes (Death, Hospitalization, Other)
  Sender: FDA-Public Use
  Company Number: US-GLAND PHARMA LIMITED-2020US006531

PATIENT
  Age: 44 Year
  Sex: Female

DRUGS (2)
  1. CARBOPLATIN. [Suspect]
     Active Substance: CARBOPLATIN
     Indication: CERVIX CARCINOMA STAGE III
     Dosage: UNK (ONE DOSE)
     Route: 065
  2. CISPLATIN. [Suspect]
     Active Substance: CISPLATIN
     Indication: CERVIX CARCINOMA STAGE III
     Dosage: 40 MG/M2, 1/WEEK (COMPLETED THREE DOSES OF CISPLATIN WITH CONCURRENT RADIATION)
     Route: 065

REACTIONS (4)
  - Acute hepatic failure [Unknown]
  - Cytopenia [Unknown]
  - Hepatitis B reactivation [Fatal]
  - Ototoxicity [Unknown]
